FAERS Safety Report 10601951 (Version 1)
Quarter: 2014Q4

REPORT INFORMATION
  Report Type: Spontaneous
  Country: US (occurrence: US)
  Receive Date: 20141124
  Receipt Date: 20141124
  Transmission Date: 20150529
  Serious: No
  Sender: FDA-Public Use
  Company Number: US-PFIZER INC-2014320731

PATIENT

DRUGS (3)
  1. TIZANIDINE (TIZANIDINE) [Suspect]
     Active Substance: TIZANIDINE
     Indication: SLEEP DISORDER
     Dosage: UNK, 1X/DAY (EVERY NIGHT)
  2. AMITRIPTYLINE [Suspect]
     Active Substance: AMITRIPTYLINE
     Indication: SLEEP DISORDER
     Dosage: UNK, 1X/DAY (EVERY NIGHT)
  3. NEURONTIN [Suspect]
     Active Substance: GABAPENTIN
     Indication: SLEEP DISORDER
     Dosage: UNK, 1X/DAY (EVEY NIGHT)

REACTIONS (4)
  - Burnout syndrome [Unknown]
  - Drug ineffective [Unknown]
  - Fatigue [Unknown]
  - Fibromyalgia [Unknown]
